FAERS Safety Report 26121350 (Version 1)
Quarter: 2025Q4

REPORT INFORMATION
  Report Type: Report from Study
  Country: EU (occurrence: EU)
  Receive Date: 20251204
  Receipt Date: 20251204
  Transmission Date: 20260118
  Serious: Yes (Hospitalization, Other)
  Sender: ROCHE
  Company Number: EU-ROCHE-10000446903

PATIENT

DRUGS (10)
  1. RITUXIMAB [Interacting]
     Active Substance: RITUXIMAB
     Indication: Multiple sclerosis
     Route: 065
  2. OCRELIZUMAB [Interacting]
     Active Substance: OCRELIZUMAB
     Indication: Multiple sclerosis
     Route: 065
  3. OFATUMUMAB [Interacting]
     Active Substance: OFATUMUMAB
     Indication: Multiple sclerosis
     Route: 065
  4. NATALIZUMAB [Interacting]
     Active Substance: NATALIZUMAB
     Indication: Multiple sclerosis
     Route: 065
  5. ALEMTUZUMAB [Interacting]
     Active Substance: ALEMTUZUMAB
     Indication: Multiple sclerosis
     Route: 065
  6. VAXZEVRIA [Interacting]
     Active Substance: AZD-1222
     Indication: Immunisation
     Route: 065
  7. SPIKEVAX [Interacting]
     Active Substance: CX-046684
     Indication: Immunisation
     Route: 065
  8. COMIRNATY (TOZINAMERAN) [Interacting]
     Active Substance: TOZINAMERAN
     Indication: Immunisation
     Route: 065
  9. AD26.COV2.S [Interacting]
     Active Substance: AD26.COV2.S
     Indication: Immunisation
     Route: 065
  10. SARS-COV-2 SPIKE GLYCOPROTEIN VACCINE ANTIGEN NVX-COV2373 [Interacting]
     Active Substance: SARS-COV-2 SPIKE GLYCOPROTEIN VACCINE ANTIGEN NVX-COV2373
     Indication: Immunisation
     Route: 065

REACTIONS (5)
  - COVID-19 [Unknown]
  - Breakthrough COVID-19 [Unknown]
  - Humoral immune defect [Unknown]
  - Vaccine interaction [Unknown]
  - Influenza [Unknown]
